FAERS Safety Report 5933419-8 (Version None)
Quarter: 2008Q4

REPORT INFORMATION
  Report Type: 
  Country: None (occurrence: None)
  Receive Date: 20081023
  Receipt Date: 20081013
  Transmission Date: 20090506
  Serious: Yes (Death)
  Sender: FDA-Public Use
  Company Number: 2008AP002738

PATIENT
  Age: 21 Month
  Sex: Female

DRUGS (7)
  1. ACYCLOVIR [Suspect]
     Indication: HERPES ZOSTER
     Dosage: 90 MG/KG; QD; PO, 30 MG/KG; QD; PO
     Route: 048
  2. ACYCLOVIR [Suspect]
     Indication: HERPES ZOSTER
     Dosage: 60 MG/KG; QD; IV, 70 MG/KG; QD; IV
     Route: 042
  3. CYCLOPHOSPHAMIDE [Concomitant]
  4. DOXORUBICIN HCL [Concomitant]
  5. VINCRISTINE [Concomitant]
  6. CISPLATIN [Concomitant]
  7. ETOPOSIDE [Concomitant]

REACTIONS (12)
  - CONJUNCTIVITIS [None]
  - CSF VIRUS IDENTIFIED [None]
  - DEVELOPMENTAL DELAY [None]
  - DISEASE COMPLICATION [None]
  - DRUG DOSE OMISSION [None]
  - DRUG INTOLERANCE [None]
  - LETHARGY [None]
  - NEOPLASM RECURRENCE [None]
  - NEUROBLASTOMA [None]
  - PATHOGEN RESISTANCE [None]
  - VARICELLA POST VACCINE [None]
  - VOMITING [None]
